FAERS Safety Report 9607238 (Version 2)
Quarter: 2013Q4

REPORT INFORMATION
  Report Type: Report from Study
  Country: AU (occurrence: AU)
  Receive Date: 20131009
  Receipt Date: 20131009
  Transmission Date: 20140711
  Serious: Yes (Hospitalization)
  Sender: FDA-Public Use
  Company Number: AU-AMGEN-AUSCT2012010127

PATIENT
  Age: 52 Year
  Sex: Male
  Weight: 80.6 kg

DRUGS (5)
  1. PANITUMUMAB [Suspect]
     Indication: COLORECTAL CANCER METASTATIC
     Dosage: 500 MG, UNK
     Route: 042
     Dates: start: 20111230, end: 20120127
  2. EVEROLIMUS [Concomitant]
     Dosage: 5 MG, UNK
     Route: 048
     Dates: start: 20111230, end: 20120218
  3. IRINOTECAN [Concomitant]
     Dosage: 410 MG, UNK
     Route: 042
     Dates: start: 20120127
  4. OXYNORM [Concomitant]
     Dosage: 5 MG, PRN
     Dates: start: 20111220
  5. PANADOL [Concomitant]
     Dosage: UNK UNK, PRN
     Dates: start: 20111220

REACTIONS (1)
  - Pneumonitis [Not Recovered/Not Resolved]
